FAERS Safety Report 17864249 (Version 3)
Quarter: 2020Q2

REPORT INFORMATION
  Report Type: Spontaneous
  Country: US (occurrence: US)
  Receive Date: 20200605
  Receipt Date: 20200619
  Transmission Date: 20200714
  Serious: Yes (Death, Life-Threatening, Hospitalization, Other)
  Sender: FDA-Public Use
  Company Number: US-UNITED THERAPEUTICS-UNT-2020-008252

PATIENT
  Age: 65 Year
  Sex: Female
  Weight: 52.61 kg

DRUGS (3)
  1. REMODULIN [Suspect]
     Active Substance: TREPROSTINIL
     Indication: PULMONARY ARTERIAL HYPERTENSION
     Dosage: UNK, CONTINUING
     Route: 058
     Dates: start: 20140428
  2. REMODULIN [Suspect]
     Active Substance: TREPROSTINIL
     Dosage: 0.114 ?G/KG, CONTINUING
     Route: 058
  3. OPSUMIT [Concomitant]
     Active Substance: MACITENTAN
     Indication: PRODUCT USED FOR UNKNOWN INDICATION
     Dosage: UNK
     Route: 065

REACTIONS (8)
  - Memory impairment [Unknown]
  - Death [Fatal]
  - Respiratory failure [Unknown]
  - Infusion site scar [Unknown]
  - Haemorrhage [Unknown]
  - Craniocerebral injury [Unknown]
  - Product administration interrupted [Unknown]
  - Weight decreased [Unknown]

NARRATIVE: CASE EVENT DATE: 20200606
